FAERS Safety Report 15637169 (Version 1)
Quarter: 2018Q4

REPORT INFORMATION
  Report Type: Spontaneous
  Country: US (occurrence: US)
  Receive Date: 20181120
  Receipt Date: 20181120
  Transmission Date: 20190205
  Serious: No
  Sender: FDA-Public Use
  Company Number: US-JNJFOC-20180414555

PATIENT

DRUGS (1)
  1. IMBRUVICA [Suspect]
     Active Substance: IBRUTINIB
     Indication: PRODUCT USED FOR UNKNOWN INDICATION
     Route: 048

REACTIONS (5)
  - Hyperglycaemia [Recovered/Resolved with Sequelae]
  - Type 1 diabetes mellitus [Recovered/Resolved with Sequelae]
  - Muscle spasms [Recovered/Resolved with Sequelae]
  - Presyncope [Recovered/Resolved with Sequelae]
  - Leukocytosis [Recovered/Resolved with Sequelae]

NARRATIVE: CASE EVENT DATE: 20161221
